FAERS Safety Report 17895191 (Version 1)
Quarter: 2020Q2

REPORT INFORMATION
  Report Type: Spontaneous
  Country: US (occurrence: US)
  Receive Date: 20200614
  Receipt Date: 20200614
  Transmission Date: 20200714
  Serious: Yes (Disabling)
  Sender: FDA-Public Use
  Company Number: None

PATIENT
  Age: 59 Year
  Sex: Female
  Weight: 74.25 kg

DRUGS (7)
  1. ASPIRIN. [Concomitant]
     Active Substance: ASPIRIN
  2. MULTIVITAMIN [Concomitant]
     Active Substance: VITAMINS
  3. HOMOCYSTEINE FACTORS [Concomitant]
  4. CIPROFLOXACIN. [Suspect]
     Active Substance: CIPROFLOXACIN
     Indication: URINARY TRACT INFECTION
     Dosage: ?          QUANTITY:1 TABLET(S);?
     Route: 048
     Dates: start: 20161107, end: 20161110
  5. SUMATRIPTAN. [Concomitant]
     Active Substance: SUMATRIPTAN
  6. VITAMIN D3 [Concomitant]
     Active Substance: CHOLECALCIFEROL
  7. CALCIUM CITRATE [Concomitant]
     Active Substance: CALCIUM CITRATE

REACTIONS (17)
  - Dry mouth [None]
  - Exercise tolerance decreased [None]
  - Asthenia [None]
  - Chest discomfort [None]
  - Abdominal distension [None]
  - Ear pain [None]
  - Paraesthesia [None]
  - Anxiety [None]
  - Burning sensation [None]
  - Insomnia [None]
  - Hypoaesthesia [None]
  - Blepharospasm [None]
  - Fatigue [None]
  - Back pain [None]
  - Dizziness [None]
  - Dysgeusia [None]
  - Pain [None]

NARRATIVE: CASE EVENT DATE: 20161107
